FAERS Safety Report 9251298 (Version 2)
Quarter: 2013Q3

REPORT INFORMATION
  Report Type: Spontaneous
  Country: CA (occurrence: CA)
  Receive Date: 20130424
  Receipt Date: 20130723
  Transmission Date: 20140515
  Serious: Yes (Other)
  Sender: FDA-Public Use
  Company Number: CA-ROCHE-1153471

PATIENT
  Age: 50 Year
  Sex: Male

DRUGS (4)
  1. XOLAIR [Suspect]
     Indication: ASTHMA
     Route: 058
     Dates: start: 20120808
  2. XOLAIR [Suspect]
     Route: 065
     Dates: start: 20130320
  3. XOLAIR [Suspect]
     Route: 065
     Dates: start: 20130717
  4. PREDNISONE [Concomitant]

REACTIONS (3)
  - Foot fracture [Unknown]
  - Nasopharyngitis [Recovering/Resolving]
  - Wheezing [Unknown]
